FAERS Safety Report 19108956 (Version 3)
Quarter: 2021Q2

REPORT INFORMATION
  Report Type: Spontaneous
  Country: US (occurrence: US)
  Receive Date: 20210408
  Receipt Date: 20210615
  Transmission Date: 20210717
  Serious: Yes (Other)
  Sender: FDA-Public Use
  Company Number: US-MALLINCKRODT PHARMACEUTICALS-T202101454

PATIENT
  Sex: Female

DRUGS (4)
  1. OFATUMUMAB [Concomitant]
     Active Substance: OFATUMUMAB
     Indication: PRODUCT USED FOR UNKNOWN INDICATION
     Dosage: 20MG/0.4ML
     Route: 065
  2. H.P. ACTHAR [Suspect]
     Active Substance: CORTICOTROPIN
     Indication: MULTIPLE SCLEROSIS
     Dosage: 80 UNITS 1 MILLILITER, DAILY FOR 5 DAYS, AS DIRECTED
     Route: 030
     Dates: start: 202012
  3. H.P. ACTHAR [Suspect]
     Active Substance: CORTICOTROPIN
     Dosage: 80 UNITS 1 MILLILITER, DAILY FOR 5 DAYS, AS DIRECTED
     Route: 030
     Dates: start: 202105
  4. COVID?19 VACCINE [Concomitant]
     Indication: PROPHYLAXIS
     Dosage: UNK
     Route: 065

REACTIONS (5)
  - Restlessness [Unknown]
  - Intracranial aneurysm [Unknown]
  - Muscular weakness [Not Recovered/Not Resolved]
  - Fatigue [Not Recovered/Not Resolved]
  - Cerebral endovascular aneurysm repair [Unknown]
